FAERS Safety Report 12986870 (Version 3)
Quarter: 2017Q2

REPORT INFORMATION
  Report Type: Spontaneous
  Country: US (occurrence: US)
  Receive Date: 20161130
  Receipt Date: 20170526
  Transmission Date: 20170830
  Serious: No
  Sender: FDA-Public Use
  Company Number: US-PFIZER INC-2016545358

PATIENT
  Age: 68 Year
  Sex: Female
  Weight: 68 kg

DRUGS (3)
  1. IBRANCE [Suspect]
     Active Substance: PALBOCICLIB
     Dosage: 1 DF, CYCLIC (1 TABLET EVERY OTHER DAY FOR 3 WEEKS, THEN 1 WEEK OFF)
  2. IBRANCE [Suspect]
     Active Substance: PALBOCICLIB
     Indication: BREAST CANCER METASTATIC
     Dosage: 125 MG, CYCLIC (DAYS 1-21, EVERY 28 DAYS)
     Route: 048
     Dates: start: 20161108
  3. IBRANCE [Suspect]
     Active Substance: PALBOCICLIB
     Dosage: 100 MG, CYCLIC [1 DAILY X 3 WEEKS OFF 1 WEEK]
     Route: 048
     Dates: start: 201701

REACTIONS (2)
  - Dry mouth [Unknown]
  - Candida infection [Unknown]

NARRATIVE: CASE EVENT DATE: 201611
